FAERS Safety Report 6256452-8 (Version None)
Quarter: 2009Q2

REPORT INFORMATION
  Report Type: 
  Country: None (occurrence: None)
  Receive Date: 20090630
  Receipt Date: 20090630
  Transmission Date: 20091009
  Serious: No
  Sender: FDA-Public Use
  Company Number: None

PATIENT
  Age: 43 Year
  Sex: Female
  Weight: 74.3899 kg

DRUGS (1)
  1. ELAVIL [Suspect]

REACTIONS (1)
  - HALLUCINATIONS, MIXED [None]
